FAERS Safety Report 17226441 (Version 1)
Quarter: 2020Q1

REPORT INFORMATION
  Report Type: Spontaneous
  Country: CN (occurrence: CN)
  Receive Date: 20200102
  Receipt Date: 20200102
  Transmission Date: 20200409
  Serious: Yes (Other)
  Sender: FDA-Public Use
  Company Number: CN-PFIZER INC-2019560453

PATIENT
  Age: 61 Year
  Sex: Female
  Weight: 46 kg

DRUGS (3)
  1. JIN GU LIAN JIAO NANG [Suspect]
     Active Substance: HERBALS
     Indication: DIABETES MELLITUS
     Dosage: 0.5 G, 1X/DAY
     Route: 048
     Dates: start: 20191221, end: 20191221
  2. ALPROSTADIL. [Suspect]
     Active Substance: ALPROSTADIL
     Indication: DIABETES MELLITUS
     Dosage: 20 UG, 1X/DAY
     Route: 041
     Dates: start: 20191221, end: 20191221
  3. CELECOXIB. [Suspect]
     Active Substance: CELECOXIB
     Indication: DIABETES MELLITUS
     Dosage: 0.2 G, 1X/DAY
     Route: 048
     Dates: start: 20191221, end: 20191221

REACTIONS (6)
  - Vomiting [Recovered/Resolved]
  - Blood pressure increased [Recovered/Resolved]
  - Product use in unapproved indication [Unknown]
  - Nausea [Recovered/Resolved]
  - Chills [Recovered/Resolved]
  - Off label use [Unknown]

NARRATIVE: CASE EVENT DATE: 20191221
